FAERS Safety Report 4270666-8 (Version None)
Quarter: 2004Q1

REPORT INFORMATION
  Report Type: 
  Country: None (occurrence: None)
  Receive Date: 20040114
  Receipt Date: 20040112
  Transmission Date: 20041129
  Serious: Yes (Disabling)
  Sender: FDA-Public Use
  Company Number: WAES 0401USA00761

PATIENT
  Age: 55 Year
  Sex: Male
  Weight: 70 kg

DRUGS (4)
  1. AMLODIPINE MALEATE [Concomitant]
     Route: 048
  2. BENDROFLUMETHIAZIDE [Concomitant]
     Route: 048
  3. PRINIVIL [Suspect]
     Route: 048
     Dates: start: 20030201, end: 20030701
  4. TIAPROFENIC ACID [Concomitant]
     Route: 048

REACTIONS (1)
  - ECZEMA [None]
